FAERS Safety Report 5740779-X (Version None)
Quarter: 2008Q2

REPORT INFORMATION
  Report Type: 
  Country: None (occurrence: None)
  Receive Date: 20080516
  Receipt Date: 20080507
  Transmission Date: 20081010
  Serious: Yes (Death, Other)
  Sender: FDA-Public Use
  Company Number: FR-PFIZER INC-2007057209

PATIENT
  Sex: Female

DRUGS (2)
  1. GENOTONORM [Suspect]
     Indication: HYPOPITUITARISM
     Dosage: FREQ:9.60 MG/WEEK
     Dates: start: 20040630, end: 20060117
  2. DECAPEPTYL [Concomitant]
     Route: 048

REACTIONS (1)
  - MEDULLOBLASTOMA RECURRENT [None]
